FAERS Safety Report 8130181-8 (Version None)
Quarter: 2012Q1

REPORT INFORMATION
  Report Type: 
  Country: None (occurrence: None)
  Receive Date: 20120210
  Receipt Date: 20120208
  Transmission Date: 20120608
  Serious: Yes (Other)
  Sender: FDA-Public Use
  Company Number: DE-ABBOTT-11P-062-0727804-00

PATIENT
  Sex: Female

DRUGS (13)
  1. CORTISONE ACETATE [Concomitant]
     Indication: RHEUMATOID ARTHRITIS
     Route: 050
  2. PANTOPRAZOLE [Concomitant]
     Indication: PRODUCT USED FOR UNKNOWN INDICATION
  3. CELEBREX [Concomitant]
     Indication: RHEUMATOID ARTHRITIS
  4. TILIDIN [Concomitant]
     Indication: RHEUMATOID ARTHRITIS
  5. ZINC SULFATE [Concomitant]
     Indication: PRODUCT USED FOR UNKNOWN INDICATION
     Dosage: INFUSION
  6. PROPAFENONE HCL [Concomitant]
     Indication: PRODUCT USED FOR UNKNOWN INDICATION
  7. CORTISONE ACETATE [Concomitant]
     Route: 048
  8. IRON [Concomitant]
     Indication: PRODUCT USED FOR UNKNOWN INDICATION
     Dosage: INFUSION
  9. HUMIRA [Suspect]
     Indication: RHEUMATOID ARTHRITIS
     Route: 058
     Dates: start: 20110506, end: 20111219
  10. LEVOTHYROXINE SODIUM [Concomitant]
     Indication: PRODUCT USED FOR UNKNOWN INDICATION
  11. CERTOPARIN-NATRIUM [Concomitant]
     Indication: PRODUCT USED FOR UNKNOWN INDICATION
     Dosage: 8000IU
  12. ANALGETIC DRUG [Concomitant]
     Indication: RHEUMATOID ARTHRITIS
  13. POTASSIUM CHLORIDE [Concomitant]
     Indication: PRODUCT USED FOR UNKNOWN INDICATION
     Route: 048

REACTIONS (15)
  - VISUAL IMPAIRMENT [None]
  - BRADYCARDIA [None]
  - DIZZINESS [None]
  - HYPERTENSION [None]
  - ALOPECIA [None]
  - ARRHYTHMIA [None]
  - PRURITUS GENERALISED [None]
  - DECREASED APPETITE [None]
  - DRUG INEFFECTIVE [None]
  - TOOTH LOSS [None]
  - JOINT SWELLING [None]
  - WEIGHT DECREASED [None]
  - LYMPHADENOPATHY [None]
  - HAEMATOMA [None]
  - BLOOD TEST ABNORMAL [None]
